FAERS Safety Report 24795079 (Version 1)
Quarter: 2024Q4

REPORT INFORMATION
  Report Type: Spontaneous
  Country: US (occurrence: US)
  Receive Date: 20241231
  Receipt Date: 20241231
  Transmission Date: 20250115
  Serious: Yes (Other)
  Sender: DR REDDYS
  Company Number: US-DRL-USA-LIT/USA/24/0019245

PATIENT
  Sex: Female

DRUGS (2)
  1. PRIMIDONE [Suspect]
     Active Substance: PRIMIDONE
     Indication: Catamenial epilepsy
  2. PROGESTERONE [Suspect]
     Active Substance: PROGESTERONE
     Indication: Seizure

REACTIONS (3)
  - Epilepsy [Unknown]
  - Drug interaction [Unknown]
  - Product use in unapproved indication [Unknown]
